FAERS Safety Report 8769450 (Version 1)
Quarter: 2012Q4

REPORT INFORMATION
  Report Type: 
  Country: US (occurrence: US)
  Receive Date: 20120905
  Receipt Date: 20120905
  Transmission Date: 20130627
  Serious: No
  Sender: FDA-Public Use
  Company Number: US-MYLANLABS-2012S1001324

PATIENT
  Sex: Female

DRUGS (1)
  1. METOPROLOL TARTRATE AND  HYDROCHLOROTHIAZIDE [Suspect]

REACTIONS (2)
  - Drug ineffective [Unknown]
  - Adverse drug reaction [Unknown]
